FAERS Safety Report 7244375-7 (Version None)
Quarter: 2011Q1

REPORT INFORMATION
  Report Type: 
  Country: None (occurrence: None)
  Receive Date: 20110119
  Receipt Date: 20110119
  Transmission Date: 20110831
  Serious: Yes (Other)
  Sender: FDA-Public Use
  Company Number: None

PATIENT
  Age: 64 Month
  Sex: Female
  Weight: 65.7716 kg

DRUGS (2)
  1. BIAXIN [Suspect]
     Indication: PELVIC INFLAMMATORY DISEASE
     Dosage: 500 BID PO
     Route: 048
     Dates: start: 20100714, end: 20101016
  2. BIAXIN [Suspect]
     Indication: SINUS DISORDER
     Dosage: 500 BID PO
     Route: 048
     Dates: start: 20101217, end: 20110107

REACTIONS (7)
  - HYPERTENSION [None]
  - OEDEMA PERIPHERAL [None]
  - CARDIOMEGALY [None]
  - GASTRITIS [None]
  - PALPITATIONS [None]
  - PRODUCT COLOUR ISSUE [None]
  - DYSGEUSIA [None]
